FAERS Safety Report 10005500 (Version 2)
Quarter: 2014Q1

REPORT INFORMATION
  Report Type: Spontaneous
  Country: IT (occurrence: IT)
  Receive Date: 20140313
  Receipt Date: 20140318
  Transmission Date: 20141002
  Serious: Yes (Life-Threatening, Other)
  Sender: FDA-Public Use
  Company Number: IT-ROCHE-1363959

PATIENT
  Age: 68 Year
  Sex: Male

DRUGS (6)
  1. LUCENTIS [Suspect]
     Indication: AGE-RELATED MACULAR DEGENERATION
     Route: 050
     Dates: start: 20130905
  2. LUCENTIS [Suspect]
     Route: 050
  3. LUCENTIS [Suspect]
     Route: 050
  4. LUCENTIS [Suspect]
     Route: 050
     Dates: start: 20140311
  5. NORVASC [Concomitant]
  6. CARDURA [Concomitant]

REACTIONS (1)
  - Myocardial infarction [Recovered/Resolved]
